FAERS Safety Report 9190320 (Version 1)
Quarter: 2013Q1

REPORT INFORMATION
  Report Type: Spontaneous
  Country: GB (occurrence: None)
  Receive Date: 20130322
  Receipt Date: 20130322
  Transmission Date: 20140127
  Serious: Yes (Other)
  Sender: FDA-Public Use
  Company Number: 2013-04991

PATIENT
  Age: 61 Year
  Sex: Female

DRUGS (8)
  1. INDAPAMIDE [Suspect]
     Indication: HYPERTENSION
     Dates: start: 20130131
  2. KLIOVANCE (ESTRADIOL, NORETHISTERONE ACETATE) [Concomitant]
  3. BEZAFIBRATE (BEZAFIBRATE) [Concomitant]
  4. CANDESARTAN (CANDESARTAN) [Concomitant]
  5. FELODIPINE (FELODIPINE) [Concomitant]
  6. TRAMADOL (TRAMADOL) [Concomitant]
  7. ZOPICLONE (ZOPICLONE) [Concomitant]
  8. CINNARIZINE (CINNARIZINE) [Concomitant]

REACTIONS (3)
  - Renal impairment [None]
  - Blood potassium decreased [None]
  - Renal function test abnormal [None]
